FAERS Safety Report 7845238-6 (Version None)
Quarter: 2011Q4

REPORT INFORMATION
  Report Type: 
  Country: None (occurrence: None)
  Receive Date: 20111025
  Receipt Date: 20111019
  Transmission Date: 20120403
  Serious: Yes (Hospitalization, Other)
  Sender: FDA-Public Use
  Company Number: US-ABBOTT-11P-163-0866453-00

PATIENT
  Sex: Female
  Weight: 68.1 kg

DRUGS (17)
  1. ANTICOAGULANT NOS [Concomitant]
     Indication: THROMBOSIS
     Route: 050
     Dates: start: 20110415, end: 20110511
  2. PREDNISONE [Concomitant]
     Indication: RHEUMATOID ARTHRITIS
     Route: 048
     Dates: start: 20100905, end: 20110125
  3. HUMIRA [Suspect]
     Indication: RHEUMATOID ARTHRITIS
     Route: 050
     Dates: start: 20100905, end: 20110125
  4. MULTI-VITAMINS [Concomitant]
     Indication: PREGNANCY
     Dosage: 1 PILL DAILY
     Route: 048
     Dates: start: 20101017, end: 20110511
  5. FOLIC ACID [Concomitant]
     Indication: PRODUCT USED FOR UNKNOWN INDICATION
     Route: 048
     Dates: start: 20100905, end: 20110511
  6. CAFFEINE CITRATE [Concomitant]
     Indication: PRODUCT USED FOR UNKNOWN INDICATION
     Dosage: DIET DR. PEPPER 1 SERVING
     Route: 048
     Dates: start: 20100905, end: 20110511
  7. KENALOG [Concomitant]
     Indication: RHEUMATOID ARTHRITIS
     Dosage: SHOT IN SHOULDER
     Route: 050
     Dates: start: 20110307, end: 20110307
  8. INSULIN NOS [Concomitant]
     Indication: GESTATIONAL DIABETES
     Route: 050
     Dates: start: 20110320, end: 20110320
  9. DARVOCET [Concomitant]
     Indication: RHEUMATOID ARTHRITIS
     Dosage: 1 PILL PRN
     Route: 048
     Dates: start: 20100905, end: 20101018
  10. DOCUSATE [Concomitant]
     Indication: CONSTIPATION PROPHYLAXIS
     Dosage: 2 PILLS BID
     Route: 048
     Dates: start: 20100905, end: 20110511
  11. CALCIUM CARBONATE [Concomitant]
     Indication: DYSPEPSIA
     Dosage: 4.5 PILLS DAILY
     Route: 048
     Dates: start: 20110307, end: 20110511
  12. ACETAMINOPHEN [Concomitant]
     Indication: RHEUMATOID ARTHRITIS
     Dosage: 2 PILLS PRN
     Route: 048
     Dates: start: 20100905, end: 20110511
  13. STEROID NOS [Concomitant]
     Indication: PROPHYLAXIS
     Route: 050
     Dates: start: 20110320, end: 20110320
  14. ANTICOAGULANT NOS [Concomitant]
     Indication: ANTICOAGULANT THERAPY
  15. TAMIFLU [Concomitant]
     Indication: INFLUENZA
     Dosage: 5-DAY COURSE
     Route: 048
     Dates: start: 20110202, end: 20110228
  16. NUVARING [Concomitant]
     Indication: CONTRACEPTION
     Dosage: TOPICAL: VAGINAL
     Dates: start: 20100905, end: 20100927
  17. AMOXICILLIN [Concomitant]
     Indication: SINUSITIS
     Dosage: 2 PILLS BID
     Route: 048
     Dates: start: 20100905, end: 20100914

REACTIONS (3)
  - THROMBOSIS [None]
  - GESTATIONAL DIABETES [None]
  - POLYHYDRAMNIOS [None]
